FAERS Safety Report 10740285 (Version 7)
Quarter: 2017Q2

REPORT INFORMATION
  Report Type: Spontaneous
  Country: CA (occurrence: CA)
  Receive Date: 20150127
  Receipt Date: 20170523
  Transmission Date: 20170829
  Serious: Yes (Hospitalization, Other)
  Sender: FDA-Public Use
  Company Number: CA-ROCHE-1526040

PATIENT
  Age: 44 Year
  Sex: Female

DRUGS (6)
  1. XOLAIR [Suspect]
     Active Substance: OMALIZUMAB
     Route: 058
     Dates: start: 20160413
  2. CORTISONE [Suspect]
     Active Substance: CORTISONE\HYDROCORTISONE
     Dosage: UNK
     Route: 065
     Dates: start: 20160413
  3. CORTISONE [Suspect]
     Active Substance: CORTISONE\HYDROCORTISONE
     Indication: BRONCHITIS
     Dosage: 50 MG, UNK
     Route: 065
     Dates: start: 20150512
  4. XOLAIR [Suspect]
     Active Substance: OMALIZUMAB
     Indication: ASTHMA
     Route: 058
     Dates: start: 20070918
  5. XOLAIR [Suspect]
     Active Substance: OMALIZUMAB
     Route: 058
     Dates: start: 20170419
  6. CORTISONE [Suspect]
     Active Substance: CORTISONE\HYDROCORTISONE
     Indication: VIRAL UPPER RESPIRATORY TRACT INFECTION
     Dosage: 25 MG, UNK
     Route: 065

REACTIONS (9)
  - Cholelithiasis [Unknown]
  - Blood pressure increased [Unknown]
  - Body temperature increased [Unknown]
  - Bronchitis [Unknown]
  - Cough [Unknown]
  - Viral upper respiratory tract infection [Unknown]
  - Weight increased [Unknown]
  - Dyspnoea [Unknown]
  - Hypokinesia [Unknown]

NARRATIVE: CASE EVENT DATE: 20130607
